FAERS Safety Report 8524750-0 (Version None)
Quarter: 2012Q3

REPORT INFORMATION
  Report Type: 
  Country: None (occurrence: None)
  Receive Date: 20120720
  Receipt Date: 20120706
  Transmission Date: 20120928
  Serious: Yes (Congenital Anomaly, Other)
  Sender: FDA-Public Use
  Company Number: DK-ELI_LILLY_AND_COMPANY-DK201207002725

PATIENT

DRUGS (2)
  1. FLUOXETINE HCL [Suspect]
     Dosage: UNK, UNKNOWN
     Route: 064
  2. FLUOXETINE HCL [Suspect]
     Dosage: UNK, UNKNOWN
     Route: 064

REACTIONS (5)
  - FOETAL EXPOSURE DURING PREGNANCY [None]
  - CARDIAC DISORDER [None]
  - MILD MENTAL RETARDATION [None]
  - MALAISE [None]
  - RENAL DISORDER [None]
